FAERS Safety Report 24793972 (Version 1)
Quarter: 2024Q4

REPORT INFORMATION
  Report Type: Spontaneous
  Country: US (occurrence: US)
  Receive Date: 20241231
  Receipt Date: 20241231
  Transmission Date: 20250115
  Serious: No
  Sender: BIOGEN
  Company Number: US-BIOGEN-2024BI01295098

PATIENT
  Sex: Female

DRUGS (1)
  1. SPINRAZA [Suspect]
     Active Substance: NUSINERSEN
     Indication: Product used for unknown indication
     Route: 050

REACTIONS (3)
  - Neurological procedural complication [Unknown]
  - Flatulence [Unknown]
  - Procedural complication [Unknown]
